FAERS Safety Report 18204317 (Version 2)
Quarter: 2021Q1

REPORT INFORMATION
  Report Type: Spontaneous
  Country: US (occurrence: US)
  Receive Date: 20200828
  Receipt Date: 20210105
  Transmission Date: 20210419
  Serious: No
  Sender: FDA-Public Use
  Company Number: US-RECORDATI RARE DISEASES-2089116

PATIENT
  Age: 51 Year
  Sex: Male

DRUGS (1)
  1. ISTURISA [Suspect]
     Active Substance: OSILODROSTAT PHOSPHATE
     Indication: CUSHING^S SYNDROME
     Dates: start: 20200806

REACTIONS (5)
  - Blood glucose increased [Unknown]
  - Neuralgia [Unknown]
  - Fatigue [Unknown]
  - Insomnia [Unknown]
  - Hypertension [Unknown]

NARRATIVE: CASE EVENT DATE: 2020
